FAERS Safety Report 20745326 (Version 1)
Quarter: 2022Q2

REPORT INFORMATION
  Report Type: Spontaneous
  Country: US (occurrence: US)
  Receive Date: 20220425
  Receipt Date: 20220425
  Transmission Date: 20220720
  Serious: No
  Sender: FDA-Public Use
  Company Number: US-BAYER-2022A056803

PATIENT
  Age: 75 Year
  Sex: Male

DRUGS (2)
  1. MIRALAX [Suspect]
     Active Substance: POLYETHYLENE GLYCOL 3350
     Dosage: 1 DF (1 CAPFUL EVERY NIGHT MIXED WITH A GLASS OF MILK DOSE)
     Route: 048
     Dates: start: 2011, end: 20220418
  2. HIGH BLOOD PRESSURURE [Concomitant]

REACTIONS (1)
  - Product use issue [None]

NARRATIVE: CASE EVENT DATE: 20110101
